FAERS Safety Report 6467658-7 (Version None)
Quarter: 2009Q4

REPORT INFORMATION
  Report Type: 
  Country: None (occurrence: None)
  Receive Date: 20091127
  Receipt Date: 20091111
  Transmission Date: 20100525
  Serious: Yes (Hospitalization)
  Sender: FDA-Public Use
  Company Number: 2009003472

PATIENT
  Age: 47 Year
  Sex: Male

DRUGS (2)
  1. TARCEVA [Suspect]
     Indication: METASTATIC BRONCHIAL CARCINOMA
     Dosage: 150 MG, ORAL
     Route: 048
     Dates: start: 20090817
  2. BETAFERON [Concomitant]

REACTIONS (2)
  - HEPATITIS CHOLESTATIC [None]
  - SKIN TOXICITY [None]
